FAERS Safety Report 5130621-2 (Version None)
Quarter: 2006Q3

REPORT INFORMATION
  Report Type: 
  Country: None (occurrence: None)
  Receive Date: 20060829
  Receipt Date: 20060623
  Transmission Date: 20061208
  Serious: No
  Sender: FDA-Public Use
  Company Number: PHEH2006US06171

PATIENT
  Age: 29 Year
  Sex: Female
  Weight: 47.2 kg

DRUGS (6)
  1. EXJADE [Suspect]
     Indication: BLOOD IRON INCREASED
     Dosage: 1000 MG, QD, ORAL
     Route: 047
     Dates: start: 20060322, end: 20060327
  2. EXJADE [Suspect]
     Indication: BLOOD IRON INCREASED
     Dosage: 1000 MG, QD, ORAL
     Route: 047
     Dates: start: 20060401, end: 20060401
  3. CALCIUM (CALCIUM) [Concomitant]
  4. PENICILLIN VK [Concomitant]
  5. ASCORBIC ACID [Concomitant]
  6. FOLIC ACID [Concomitant]

REACTIONS (5)
  - FACE OEDEMA [None]
  - OEDEMA MOUTH [None]
  - PRURITUS [None]
  - RASH MACULO-PAPULAR [None]
  - URTICARIA [None]
